FAERS Safety Report 9284785 (Version 9)
Quarter: 2015Q4

REPORT INFORMATION
  Report Type: Report from Study
  Country: GB (occurrence: GB)
  Receive Date: 20130513
  Receipt Date: 20151224
  Transmission Date: 20160305
  Serious: Yes (Life-Threatening, Hospitalization)
  Sender: FDA-Public Use
  Company Number: GB-ROCHE-1223330

PATIENT
  Age: 68 Year
  Sex: Female
  Weight: 50.5 kg

DRUGS (14)
  1. TAZOCIN [Concomitant]
     Active Substance: PIPERACILLIN SODIUM\TAZOBACTAM SODIUM
     Route: 065
     Dates: start: 20130506
  2. ACICLOVIR [Concomitant]
     Active Substance: ACYCLOVIR
     Indication: MUCOSAL INFLAMMATION
     Route: 065
     Dates: start: 20130422
  3. DIFFLAM [Concomitant]
     Active Substance: BENZYDAMINE HYDROCHLORIDE
     Indication: MUCOSAL INFLAMMATION
     Route: 048
     Dates: start: 20130422
  4. PARACETAMOL [Concomitant]
     Active Substance: ACETAMINOPHEN
     Route: 065
     Dates: start: 20130506
  5. RAMIPRIL. [Concomitant]
     Active Substance: RAMIPRIL
     Indication: HYPERTENSION
     Route: 048
  6. HALOPERIDOL. [Concomitant]
     Active Substance: HALOPERIDOL
     Route: 065
     Dates: start: 20130506
  7. CIPROFLOXACIN. [Concomitant]
     Active Substance: CIPROFLOXACIN
     Indication: NEUTROPENIA
     Route: 065
     Dates: start: 20130425, end: 20130429
  8. CALCIUM RESONIUM [Concomitant]
  9. BEVACIZUMAB [Suspect]
     Active Substance: BEVACIZUMAB
     Indication: COLON CANCER
     Dosage: ON 12/APR/2013, LAST DOSE PRIOR TO THE EVENT WAS RECEIVED.
     Route: 042
     Dates: start: 20130412
  10. BENDROFLUMETHIAZID [Concomitant]
     Indication: HYPERTENSION
     Route: 048
  11. LANSOPRAZOLE. [Concomitant]
     Active Substance: LANSOPRAZOLE
  12. BEVACIZUMAB [Suspect]
     Active Substance: BEVACIZUMAB
     Dosage: MOST RECENT DOSE
     Route: 042
     Dates: start: 20150412
  13. FLUCONAZOLE. [Concomitant]
     Active Substance: FLUCONAZOLE
     Indication: ORAL CANDIDIASIS
     Route: 048
     Dates: start: 20130422
  14. SALINE ORAL OTC [Concomitant]
     Active Substance: SODIUM CHLORIDE
     Indication: HYPERKALAEMIA
     Route: 042
     Dates: start: 20130506, end: 20130509

REACTIONS (3)
  - Hyperkalaemia [Recovered/Resolved]
  - Acute kidney injury [Not Recovered/Not Resolved]
  - Sepsis [Not Recovered/Not Resolved]

NARRATIVE: CASE EVENT DATE: 20130506
